FAERS Safety Report 18654933 (Version 1)
Quarter: 2020Q4

REPORT INFORMATION
  Report Type: Spontaneous
  Country: US (occurrence: US)
  Receive Date: 20201223
  Receipt Date: 20201223
  Transmission Date: 20210114
  Serious: Yes (Other)
  Sender: FDA-Public Use
  Company Number: None

PATIENT
  Age: 38 Year
  Sex: Male

DRUGS (5)
  1. ENBREL [Suspect]
     Active Substance: ETANERCEPT
     Indication: RHEUMATOID ARTHRITIS
     Dosage: ?          OTHER FREQUENCY:WEEKLY;?
     Route: 058
     Dates: start: 20200909, end: 20201104
  2. MELOXICAM. [Concomitant]
     Active Substance: MELOXICAM
  3. AMPHETAMINE-DEXTROAMPHETAMINE [Concomitant]
     Active Substance: AMPHETAMINE SULFATE\DEXTROAMPHETAMINE
  4. SULFASALAZINE. [Concomitant]
     Active Substance: SULFASALAZINE
  5. IBGARD [Concomitant]

REACTIONS (3)
  - Burning sensation [None]
  - Rash [None]
  - Dermatitis [None]

NARRATIVE: CASE EVENT DATE: 20201015
